FAERS Safety Report 10166425 (Version 1)
Quarter: 2014Q2

REPORT INFORMATION
  Report Type: Spontaneous
  Country: US (occurrence: US)
  Receive Date: 20140512
  Receipt Date: 20140512
  Transmission Date: 20141212
  Serious: No
  Sender: FDA-Public Use
  Company Number: US-BAYER-2014-065549

PATIENT
  Sex: Female

DRUGS (2)
  1. YASMIN [Suspect]
     Indication: ADNEXA UTERI PAIN
     Route: 048
  2. YASMIN [Suspect]
     Indication: OVARIAN CYST

REACTIONS (1)
  - Off label use [None]
